FAERS Safety Report 18891327 (Version 3)
Quarter: 2021Q1

REPORT INFORMATION
  Report Type: Spontaneous
  Country: US (occurrence: US)
  Receive Date: 20210215
  Receipt Date: 20210303
  Transmission Date: 20210420
  Serious: No
  Sender: FDA-Public Use
  Company Number: US-BEH-2021128369

PATIENT
  Age: 25 Year
  Sex: Female

DRUGS (2)
  1. HIZENTRA [Suspect]
     Active Substance: HUMAN IMMUNOGLOBULIN G
     Indication: PRODUCT USED FOR UNKNOWN INDICATION
     Dosage: 2 GRAM, BIW (EVERY 4 DAYS)
     Route: 058
  2. HIZENTRA [Suspect]
     Active Substance: HUMAN IMMUNOGLOBULIN G
     Dosage: 2 GRAM, BIW (EVERY 4 DAYS)
     Route: 058

REACTIONS (6)
  - Ill-defined disorder [Unknown]
  - Product distribution issue [Unknown]
  - Therapy cessation [Unknown]
  - Malaise [Unknown]
  - Insurance issue [Unknown]
  - No adverse event [Unknown]
